FAERS Safety Report 15628383 (Version 1)
Quarter: 2018Q4

REPORT INFORMATION
  Report Type: Spontaneous
  Country: GB (occurrence: GB)
  Receive Date: 20181116
  Receipt Date: 20181116
  Transmission Date: 20190205
  Serious: Yes (Other)
  Sender: FDA-Public Use
  Company Number: GB-BAUSCH-BL-2018-031851

PATIENT
  Sex: Female

DRUGS (1)
  1. MINIMS PREDNISOLONE SODIUM PHOSPHATE 0.5% W/V EYE DROPS, SOLUTION [Suspect]
     Active Substance: PREDNISOLONE SODIUM PHOSPHATE
     Indication: PRODUCT USED FOR UNKNOWN INDICATION
     Dosage: SINGLE DOSE, USING THESE EYE DROPS FOR SOME YEARS.
     Route: 065

REACTIONS (3)
  - Deafness [Unknown]
  - Product supply issue [Not Recovered/Not Resolved]
  - Therapy cessation [Not Recovered/Not Resolved]
